FAERS Safety Report 18090419 (Version 2)
Quarter: 2021Q3

REPORT INFORMATION
  Report Type: Spontaneous
  Country: MY (occurrence: MY)
  Receive Date: 20200730
  Receipt Date: 20210705
  Transmission Date: 20211014
  Serious: Yes (Other)
  Sender: FDA-Public Use
  Company Number: MY-ROCHE-2650540

PATIENT
  Age: 65 Year
  Sex: Male

DRUGS (3)
  1. GAZYVA [Suspect]
     Active Substance: OBINUTUZUMAB
     Indication: FOLLICULAR LYMPHOMA
     Route: 042
  2. GAZYVA [Suspect]
     Active Substance: OBINUTUZUMAB
     Indication: B-CELL LYMPHOMA
  3. BENDAMUSTINE [Suspect]
     Active Substance: BENDAMUSTINE
     Indication: FOLLICULAR LYMPHOMA
     Route: 042

REACTIONS (3)
  - Pneumocystis jirovecii infection [Unknown]
  - Leukopenia [Unknown]
  - Anaemia [Unknown]
